FAERS Safety Report 7964345-0 (Version None)
Quarter: 2011Q4

REPORT INFORMATION
  Report Type: 
  Country: None (occurrence: None)
  Receive Date: 20111208
  Receipt Date: 20111205
  Transmission Date: 20120403
  Serious: Yes (Death)
  Sender: FDA-Public Use
  Company Number: GB-B.I. PHARMACEUTICALS,INC./RIDGEFIELD-2011-UK-01287UK

PATIENT
  Sex: Female
  Weight: 56.5 kg

DRUGS (15)
  1. ACETAMINOPHEN [Concomitant]
     Dosage: TAKE 1 OR 2, 4 TIMES/DAY
     Dates: start: 20111026
  2. FREESTYLE LITE BIOSENSOR STRIPS [Concomitant]
     Dosage: USE AS DIRECTED
     Dates: start: 20111101
  3. TRAJENTA [Suspect]
     Indication: DIABETES MELLITUS
     Route: 048
  4. LEVOTHYROXINE SODIUM [Concomitant]
     Dosage: 50 MCG
     Dates: start: 20111026
  5. MESALAMINE [Concomitant]
     Dosage: 1200 MG
     Dates: start: 20111026
  6. HYDROMOL CREAM [Concomitant]
     Dosage: USE AS DIRECTED
     Dates: start: 20110601
  7. CIPROFLOXACIN [Concomitant]
     Dosage: 200 MG
     Dates: start: 20110912
  8. CLOTRIMAZOLE CREAM 2% [Concomitant]
     Dosage: 2-3 TIMES/DAY
     Dates: start: 20110916
  9. FREESTYLE LANCETS 0.5MM/28GAUGE [Concomitant]
     Dosage: USE AS DIRECTED
     Dates: start: 20111101
  10. ACETAMINOPHEN [Concomitant]
     Dosage: 2000 MG
     Dates: start: 20111026
  11. OMEPRAZOLE [Concomitant]
     Dosage: 20 MG
     Dates: start: 20111026
  12. CIPROFLOXACIN [Concomitant]
     Dosage: 500 MG
     Dates: start: 20110929
  13. TRIMETHOPRIM [Concomitant]
     Dosage: 400 MG
     Dates: start: 20111028
  14. ASPIRIN [Concomitant]
     Dosage: 75 MG
     Dates: start: 20110608
  15. LEVOTHYROXINE SODIUM [Concomitant]
     Dosage: 25 MCG
     Dates: start: 20111026

REACTIONS (1)
  - DEATH [None]
